FAERS Safety Report 9244308 (Version 1)
Quarter: 2013Q2

REPORT INFORMATION
  Report Type: Spontaneous
  Country: US (occurrence: US)
  Receive Date: 20130418
  Receipt Date: 20130422
  Transmission Date: 20140414
  Serious: Yes (Other)
  Sender: FDA-Public Use
  Company Number: US-RB-052630-13

PATIENT
  Age: 86 Year
  Sex: Female

DRUGS (4)
  1. DELSYM ADULT GRAPE COUGH SYRUP [Suspect]
     Indication: COUGH
     Dosage: STOPPED ON 03-APR-2013
     Route: 048
     Dates: start: 20130401
  2. PRAVACHOL [Concomitant]
     Indication: PRODUCT USED FOR UNKNOWN INDICATION
  3. LUMIGAN [Concomitant]
     Indication: PRODUCT USED FOR UNKNOWN INDICATION
  4. ALPHAGAN [Concomitant]
     Indication: PRODUCT USED FOR UNKNOWN INDICATION

REACTIONS (2)
  - Hypertension [Recovering/Resolving]
  - Constipation [Recovered/Resolved]
